FAERS Safety Report 12140178 (Version 1)
Quarter: 2016Q1

REPORT INFORMATION
  Report Type: Spontaneous
  Country: US (occurrence: None)
  Receive Date: 20160302
  Receipt Date: 20160302
  Transmission Date: 20160526
  Serious: No
  Sender: FDA-Public Use
  Company Number: None

PATIENT
  Age: 88 Year
  Sex: Male
  Weight: 65.77 kg

DRUGS (7)
  1. COREG [Concomitant]
     Active Substance: CARVEDILOL
  2. VITAMIN D [Concomitant]
     Active Substance: CHOLECALCIFEROL
  3. COQ10 [Concomitant]
     Active Substance: UBIDECARENONE
  4. NORVASC [Concomitant]
     Active Substance: AMLODIPINE BESYLATE
  5. MULTIVITAMIN [Concomitant]
     Active Substance: VITAMINS
  6. ATACAND [Concomitant]
     Active Substance: CANDESARTAN CILEXETIL
  7. LISINOPRIL. [Suspect]
     Active Substance: LISINOPRIL
     Indication: PRODUCT USED FOR UNKNOWN INDICATION
     Route: 048
     Dates: start: 20160228, end: 20160301

REACTIONS (3)
  - Pharyngeal oedema [None]
  - Angioedema [None]
  - Swelling face [None]

NARRATIVE: CASE EVENT DATE: 20160301
